FAERS Safety Report 6587732-4 (Version None)
Quarter: 2010Q1

REPORT INFORMATION
  Report Type: 
  Country: None (occurrence: None)
  Receive Date: 20100204
  Receipt Date: 20100125
  Transmission Date: 20100710
  Serious: Yes (Hospitalization)
  Sender: FDA-Public Use
  Company Number: 489351

PATIENT
  Age: 56 Year
  Sex: Female

DRUGS (4)
  1. EPIRUBICIN [Suspect]
     Indication: BREAST CANCER
     Dosage: FOUR CYCLES
  2. CYCLOPHOSPHAMIDE [Suspect]
     Indication: BREAST CANCER
     Dosage: FOUR CYCLES
  3. DOCETAXEL [Suspect]
     Indication: BREAST CANCER
     Dosage: THREE CYCLES
  4. THERAPEUTIC RADIOPHARMACEUTICALS [Suspect]
     Indication: BREAST CANCER

REACTIONS (2)
  - B PRECURSOR TYPE ACUTE LEUKAEMIA [None]
  - STEM CELL TRANSPLANT [None]
